FAERS Safety Report 6367979-2 (Version None)
Quarter: 2009Q3

REPORT INFORMATION
  Report Type: 
  Country: None (occurrence: None)
  Receive Date: 20090914
  Receipt Date: 20090902
  Transmission Date: 20100115
  Serious: Yes (Hospitalization)
  Sender: FDA-Public Use
  Company Number: 2009020666

PATIENT
  Sex: Male

DRUGS (3)
  1. ALBUMINAR-25 [Suspect]
     Indication: METASTASES TO LYMPH NODES
     Dosage: (50 ML, 50 ML WEEKLY INTRAVENOUS (NOT OTHERWISE SPECIFIED)
     Route: 042
  2. CARIMUNE NF [Suspect]
     Indication: METASTASES TO LYMPH NODES
     Dosage: (18 G, 18 GRAMS EVERY 3 WEEKS INTRAVENOUS (NOT OTHERWISE SPECIFIED)
     Route: 042
  3. [1] TPN (TPN) (TO UNKNOWN) [Concomitant]

REACTIONS (4)
  - BLOOD CULTURE POSITIVE [None]
  - KLEBSIELLA INFECTION [None]
  - PYREXIA [None]
  - TRANSMISSION OF AN INFECTIOUS AGENT VIA A MEDICINAL PRODUCT [None]
